FAERS Safety Report 15263386 (Version 1)
Quarter: 2018Q4

REPORT INFORMATION
  Report Type: Spontaneous
  Country: IT (occurrence: IT)
  Receive Date: 20180810
  Receipt Date: 20180810
  Transmission Date: 20190204
  Serious: Yes (Life-Threatening, Hospitalization, Other)
  Sender: FDA-Public Use
  Company Number: IT-ACCORD-070610

PATIENT
  Age: 74 Year
  Sex: Female

DRUGS (2)
  1. HYDROCHLOROTHIAZIDE/TELMISARTAN [Suspect]
     Active Substance: HYDROCHLOROTHIAZIDE\TELMISARTAN
     Indication: HYPERTENSION
     Dosage: STRENGTH: HYDROCHLOROTHIAZIDE (12.5 MG) AND TELMISARTAN 40 MG
  2. HYDROCHLOROTHIAZIDE. [Suspect]
     Active Substance: HYDROCHLOROTHIAZIDE
     Indication: HYPERTENSION

REACTIONS (9)
  - Disseminated intravascular coagulation [Recovered/Resolved]
  - Respiratory acidosis [Recovered/Resolved]
  - Hypersensitivity [Unknown]
  - Rash [Unknown]
  - Anaphylactic shock [Recovered/Resolved]
  - Laryngospasm [Unknown]
  - Interstitial lung disease [Recovered/Resolved]
  - Accidental exposure to product [Unknown]
  - Non-cardiogenic pulmonary oedema [Recovered/Resolved]
